FAERS Safety Report 16684303 (Version 1)
Quarter: 2019Q3

REPORT INFORMATION
  Report Type: Spontaneous
  Country: FR (occurrence: FR)
  Receive Date: 20190808
  Receipt Date: 20190808
  Transmission Date: 20191004
  Serious: Yes (Hospitalization)
  Sender: FDA-Public Use
  Company Number: FR-TEVA-2019-FR-1089223

PATIENT
  Age: 89 Year
  Sex: Male
  Weight: 60 kg

DRUGS (13)
  1. LANSOPRAZOLE. [Suspect]
     Active Substance: LANSOPRAZOLE
     Indication: DYSPEPSIA
     Route: 048
     Dates: start: 2018, end: 20190627
  2. APIXABAN [Concomitant]
     Active Substance: APIXABAN
  3. AMIODARONE [Concomitant]
     Active Substance: AMIODARONE
  4. RAMIPRIL. [Concomitant]
     Active Substance: RAMIPRIL
  5. PARACETAMOL [Concomitant]
     Active Substance: ACETAMINOPHEN
  6. AMLODIPINE [Concomitant]
     Active Substance: AMLODIPINE BESYLATE
  7. FINASTERIDE. [Concomitant]
     Active Substance: FINASTERIDE
  8. DIFFU K [Concomitant]
     Active Substance: POTASSIUM CHLORIDE
  9. FUROSEMIDE. [Suspect]
     Active Substance: FUROSEMIDE
     Indication: MYOCARDIAL ISCHAEMIA
     Route: 048
     Dates: start: 201806, end: 20190627
  10. TAMSULOSINE [Concomitant]
     Active Substance: TAMSULOSIN HYDROCHLORIDE
  11. ULTIBRO BREEZHALER [Concomitant]
     Active Substance: GLYCOPYRRONIUM\INDACATEROL
  12. MACROGOLS [Concomitant]
     Active Substance: POLYETHYLENE GLYCOLS
  13. PRAVASTATINE SODIQUE [Concomitant]
     Active Substance: PRAVASTATIN SODIUM

REACTIONS (1)
  - Hyponatraemia [Recovered/Resolved]

NARRATIVE: CASE EVENT DATE: 20190627
